FAERS Safety Report 17429297 (Version 1)
Quarter: 2020Q1

REPORT INFORMATION
  Report Type: Spontaneous
  Country: US (occurrence: US)
  Receive Date: 20200218
  Receipt Date: 20200218
  Transmission Date: 20200409
  Serious: No
  Sender: FDA-Public Use
  Company Number: US-JNJFOC-20200225025

PATIENT
  Sex: Female

DRUGS (1)
  1. NIZORAL [Suspect]
     Active Substance: KETOCONAZOLE
     Indication: FUNGAL SKIN INFECTION
     Route: 061

REACTIONS (3)
  - Dry skin [Unknown]
  - Pruritus [Unknown]
  - Skin wrinkling [Unknown]
